FAERS Safety Report 5090789-3 (Version None)
Quarter: 2006Q3

REPORT INFORMATION
  Report Type: 
  Country: None (occurrence: None)
  Receive Date: 20060823
  Receipt Date: 20060811
  Transmission Date: 20061208
  Serious: Yes (Other)
  Sender: FDA-Public Use
  Company Number: 228732

PATIENT
  Age: 52 Year
  Sex: Female

DRUGS (4)
  1. HERCEPTIN [Suspect]
     Indication: BREAST CANCER
  2. DOCETAXEL(DOCETAXEL) [Suspect]
     Indication: BREAST CANCER
  3. MELPHALAN(MELPHALAN) [Suspect]
     Indication: BREAST CANCER
  4. CARBOPLATIN [Suspect]
     Indication: BREAST CANCER

REACTIONS (1)
  - HYPERAMMONAEMIA [None]
